FAERS Safety Report 15745959 (Version 2)
Quarter: 2019Q1

REPORT INFORMATION
  Report Type: Spontaneous
  Country: RO (occurrence: RO)
  Receive Date: 20181220
  Receipt Date: 20190114
  Transmission Date: 20190417
  Serious: No
  Sender: FDA-Public Use
  Company Number: RO-009507513-1812ROM006678

PATIENT
  Age: 69 Year
  Sex: Female

DRUGS (3)
  1. TEMOZOLOMIDE. [Suspect]
     Active Substance: TEMOZOLOMIDE
     Indication: GLIOBLASTOMA
     Dosage: 200 MILLIGRAM/SQ. METER, DAYS 1-5 (FOR 2 YEARS)
     Route: 065
     Dates: end: 201703
  2. TEMOZOLOMIDE. [Suspect]
     Active Substance: TEMOZOLOMIDE
     Dosage: 150 MILLIGRAM/SQ. METER, DAYS 1-5 (1ST CYCLE), Q4W
     Route: 065
  3. TEMOZOLOMIDE. [Suspect]
     Active Substance: TEMOZOLOMIDE
     Dosage: 75 MILLIGRAM/SQ. METER, DAILY, FROM THE FIRST DAY OF RADIOTHERAPY UNTIL THE LAST DAY
     Route: 065

REACTIONS (1)
  - Off label use [Unknown]
